FAERS Safety Report 5398811-1 (Version None)
Quarter: 2007Q3

REPORT INFORMATION
  Report Type: 
  Country: None (occurrence: None)
  Receive Date: 20070725
  Receipt Date: 20070725
  Transmission Date: 20080115
  Serious: No
  Sender: FDA-Public Use
  Company Number: None

PATIENT
  Age: 38 Year
  Sex: Female
  Weight: 53.0709 kg

DRUGS (1)
  1. LIPITOR [Suspect]
     Indication: DIAGNOSTIC PROCEDURE
     Dosage: 40 MG 1QD PO
     Route: 048
     Dates: start: 20021014, end: 20041025

REACTIONS (1)
  - THYMUS ENLARGEMENT [None]
